FAERS Safety Report 6716673-4 (Version None)
Quarter: 2010Q2

REPORT INFORMATION
  Report Type: 
  Country: None (occurrence: None)
  Receive Date: 20100510
  Receipt Date: 20100428
  Transmission Date: 20101027
  Serious: Yes (Hospitalization)
  Sender: FDA-Public Use
  Company Number: US-BIOGENIDEC-2010BI014592

PATIENT
  Age: 19 Year
  Sex: Male

DRUGS (9)
  1. TYSABRI [Suspect]
     Indication: CROHN'S DISEASE
     Route: 042
     Dates: start: 20090211, end: 20090211
  2. STEROIDS [Concomitant]
     Indication: CROHN'S DISEASE
  3. PREVACID [Concomitant]
     Indication: DRUG USE FOR UNKNOWN INDICATION
     Route: 048
  4. FOLIC ACID [Concomitant]
     Indication: DRUG USE FOR UNKNOWN INDICATION
     Route: 048
  5. PEPTAMEN [Concomitant]
     Indication: NUTRITIONAL SUPPORT
  6. FERROUS SULFATE TAB [Concomitant]
     Indication: DRUG USE FOR UNKNOWN INDICATION
  7. TOPAMAX [Concomitant]
     Indication: DRUG USE FOR UNKNOWN INDICATION
  8. ZOMIG [Concomitant]
     Indication: DRUG USE FOR UNKNOWN INDICATION
  9. ROZEREM [Concomitant]
     Indication: DRUG USE FOR UNKNOWN INDICATION

REACTIONS (4)
  - CROHN'S DISEASE [None]
  - IRON DEFICIENCY ANAEMIA [None]
  - PORTAL VEIN THROMBOSIS [None]
  - SMALL INTESTINAL OBSTRUCTION [None]
